FAERS Safety Report 19751169 (Version 4)
Quarter: 2021Q4

REPORT INFORMATION
  Report Type: Other
  Country: CA (occurrence: CA)
  Receive Date: 20210826
  Receipt Date: 20211022
  Transmission Date: 20220303
  Serious: Yes (Other)
  Sender: FDA-Public Use
  Company Number: CA-ROCHE-2571924

PATIENT
  Sex: Female

DRUGS (6)
  1. OCREVUS [Suspect]
     Active Substance: OCRELIZUMAB
     Indication: Relapsing-remitting multiple sclerosis
     Dosage: DAY 0, 14 THEN 600 MG Q6M; CONCENTRATE FOR INTRAVENOUS INFUSION
     Route: 042
     Dates: start: 20200305
  2. AMILORIDE [Concomitant]
     Active Substance: AMILORIDE
  3. BACLOFEN [Concomitant]
     Active Substance: BACLOFEN
  4. VOLTAREN [Concomitant]
     Active Substance: DICLOFENAC SODIUM
  5. PREDNISONE [Concomitant]
     Active Substance: PREDNISONE
  6. COVID-19 VACCINE [Concomitant]

REACTIONS (4)
  - Back pain [Recovering/Resolving]
  - Headache [Not Recovered/Not Resolved]
  - Amenorrhoea [Not Recovered/Not Resolved]
  - Demyelination [Unknown]
